FAERS Safety Report 5374590-9 (Version None)
Quarter: 2007Q2

REPORT INFORMATION
  Report Type: 
  Country: None (occurrence: None)
  Receive Date: 20070629
  Receipt Date: 20070626
  Transmission Date: 20071010
  Serious: Yes (Other)
  Sender: FDA-Public Use
  Company Number: SE-JNJFOC-20070606285

PATIENT
  Age: 49 Year
  Sex: Male

DRUGS (9)
  1. CONCERTA [Suspect]
     Indication: DRUG USE FOR UNKNOWN INDICATION
     Route: 048
  2. DEXOFEN [Suspect]
  3. DEXOFEN [Suspect]
     Indication: DRUG USE FOR UNKNOWN INDICATION
  4. SEVOFLURAN [Concomitant]
  5. MARCAINE [Concomitant]
     Route: 050
  6. RAPIFEN [Concomitant]
     Route: 050
  7. PROPOFOL [Concomitant]
  8. XEFO [Concomitant]
  9. ALVEDON [Concomitant]

REACTIONS (1)
  - HALLUCINATION [None]
